FAERS Safety Report 8234700-2 (Version None)
Quarter: 2012Q1

REPORT INFORMATION
  Report Type: 
  Country: None (occurrence: None)
  Receive Date: 20120322
  Receipt Date: 20120309
  Transmission Date: 20120608
  Serious: Yes (Other)
  Sender: FDA-Public Use
  Company Number: 2012AP000682

PATIENT
  Age: 46 Year
  Sex: Male

DRUGS (1)
  1. PAROXETINE HCL [Suspect]
     Indication: ANXIETY
     Dosage: 40 MG ; 60 MG

REACTIONS (8)
  - CONDITION AGGRAVATED [None]
  - HOMICIDE [None]
  - DELIRIUM [None]
  - AKATHISIA [None]
  - ANOSOGNOSIA [None]
  - SUICIDAL IDEATION [None]
  - HOMICIDAL IDEATION [None]
  - MENTAL DISORDER [None]
